FAERS Safety Report 10776283 (Version 1)
Quarter: 2015Q1

REPORT INFORMATION
  Report Type: Spontaneous
  Country: US (occurrence: None)
  Receive Date: 20150205
  Receipt Date: 20150205
  Transmission Date: 20150721
  Serious: Yes (Hospitalization)
  Sender: FDA-Public Use
  Company Number: None

PATIENT
  Age: 78 Year
  Sex: Female
  Weight: 68.8 kg

DRUGS (30)
  1. PERFORMIST [Concomitant]
  2. LATANOPROST. [Concomitant]
     Active Substance: LATANOPROST
  3. LIDODERM [Concomitant]
     Active Substance: LIDOCAINE
  4. PLAVIX [Suspect]
     Active Substance: CLOPIDOGREL BISULFATE
     Indication: ATRIAL FIBRILLATION
     Route: 048
  5. PLAVIX [Suspect]
     Active Substance: CLOPIDOGREL BISULFATE
     Indication: CORONARY ARTERY DISEASE
     Route: 048
  6. ASPIRIN. [Suspect]
     Active Substance: ASPIRIN
     Indication: CORONARY ARTERY DISEASE
     Route: 048
  7. FERROUS SULFATE [Concomitant]
     Active Substance: FERROUS SULFATE\FERROUS SULFATE, DRIED
  8. LASIX [Concomitant]
     Active Substance: FUROSEMIDE
  9. PRILOSEC [Concomitant]
     Active Substance: OMEPRAZOLE MAGNESIUM
  10. DELTASANE [Concomitant]
  11. SPIRIVA [Concomitant]
     Active Substance: TIOTROPIUM BROMIDE MONOHYDRATE
  12. LANTUS [Concomitant]
     Active Substance: INSULIN GLARGINE
  13. PROVENTIL [Concomitant]
     Active Substance: ALBUTEROL
  14. LIPITOR [Concomitant]
     Active Substance: ATORVASTATIN CALCIUM
  15. DITROPEN [Concomitant]
  16. ASPIRIN. [Suspect]
     Active Substance: ASPIRIN
     Indication: ATRIAL FIBRILLATION
     Route: 048
  17. VIT. C [Concomitant]
  18. PULMICORT TURBUHALER [Concomitant]
     Active Substance: BUDESONIDE
  19. PERIOLACE [Concomitant]
  20. CARDIZEM [Concomitant]
     Active Substance: DILTIAZEM HYDROCHLORIDE
  21. HUMALOG [Concomitant]
     Active Substance: INSULIN LISPRO
  22. XOP0EREX [Concomitant]
  23. NTG [Concomitant]
     Active Substance: NITROGLYCERIN
  24. THEOPHYLLINE [Concomitant]
     Active Substance: THEOPHYLLINE ANHYDROUS
  25. XANAX [Concomitant]
     Active Substance: ALPRAZOLAM
  26. LANTUS [Concomitant]
     Active Substance: INSULIN GLARGINE
  27. ZESTRIL [Concomitant]
     Active Substance: LISINOPRIL
  28. MIRALAX [Concomitant]
     Active Substance: POLYETHYLENE GLYCOL 3350
  29. K-DUR [Concomitant]
     Active Substance: POTASSIUM CHLORIDE
  30. CYMBALTA [Concomitant]
     Active Substance: DULOXETINE HYDROCHLORIDE

REACTIONS (4)
  - Diverticulum [None]
  - Upper gastrointestinal haemorrhage [None]
  - Angiopathy [None]
  - Haemorrhagic anaemia [None]

NARRATIVE: CASE EVENT DATE: 20141022
